FAERS Safety Report 18649904 (Version 1)
Quarter: 2020Q4

REPORT INFORMATION
  Report Type: Spontaneous
  Country: IT (occurrence: IT)
  Receive Date: 20201222
  Receipt Date: 20201222
  Transmission Date: 20210114
  Serious: Yes (Other)
  Sender: FDA-Public Use
  Company Number: IT-OTSUKA-2020_031953

PATIENT
  Age: 36 Year
  Sex: Male
  Weight: 115 kg

DRUGS (1)
  1. ABILIFY [Suspect]
     Active Substance: ARIPIPRAZOLE
     Indication: MANIA
     Dosage: 20 MG, QD
     Route: 048
     Dates: start: 20120220, end: 20191231

REACTIONS (6)
  - Intentional self-injury [Recovered/Resolved]
  - Insomnia [Recovered/Resolved]
  - Gambling disorder [Recovered/Resolved]
  - Aggression [Recovered/Resolved]
  - Hallucination, auditory [Recovered/Resolved]
  - Personality change [Recovered/Resolved]

NARRATIVE: CASE EVENT DATE: 20120325
